FAERS Safety Report 20409037 (Version 1)
Quarter: 2022Q1

REPORT INFORMATION
  Report Type: Spontaneous
  Country: US (occurrence: US)
  Receive Date: 20220201
  Receipt Date: 20220201
  Transmission Date: 20220423
  Serious: No
  Sender: FDA-Public Use
  Company Number: US-TEVA-2021-US-1995121

PATIENT
  Sex: Male

DRUGS (1)
  1. HYDROXYZINE PAMOATE [Suspect]
     Active Substance: HYDROXYZINE PAMOATE
     Route: 065

REACTIONS (3)
  - Contraindicated product prescribed [Unknown]
  - Intercepted product prescribing error [Unknown]
  - Urticaria [Unknown]
